FAERS Safety Report 7594715-4 (Version None)
Quarter: 2011Q3

REPORT INFORMATION
  Report Type: 
  Country: None (occurrence: None)
  Receive Date: 20110707
  Receipt Date: 20110701
  Transmission Date: 20111222
  Serious: Yes (Hospitalization, Other)
  Sender: FDA-Public Use
  Company Number: US-JNJFOC-20100806909

PATIENT
  Sex: Male

DRUGS (2)
  1. LEVAQUIN [Suspect]
     Indication: SINUS DISORDER
     Route: 048
     Dates: start: 20031125, end: 20031216
  2. LEVAQUIN [Suspect]
     Indication: BRONCHITIS
     Route: 048
     Dates: start: 20031125, end: 20031216

REACTIONS (7)
  - DEPRESSION [None]
  - TENDON RUPTURE [None]
  - SUICIDAL IDEATION [None]
  - TENDONITIS [None]
  - ANXIETY [None]
  - ROTATOR CUFF SYNDROME [None]
  - TENOSYNOVITIS [None]
